FAERS Safety Report 19367228 (Version 3)
Quarter: 2021Q2

REPORT INFORMATION
  Report Type: Report from Study
  Country: IT (occurrence: IT)
  Receive Date: 20210602
  Receipt Date: 20210614
  Transmission Date: 20210717
  Serious: No
  Sender: FDA-Public Use
  Company Number: IT-BAUSCH-BL-2021-018767

PATIENT
  Age: 58 Year
  Sex: Female

DRUGS (2)
  1. VITAMIN D ANALOGUES [Concomitant]
     Indication: PRODUCT USED FOR UNKNOWN INDICATION
     Dates: start: 20210116
  2. KYNTHEUM [Suspect]
     Active Substance: BRODALUMAB
     Indication: PSORIASIS
     Route: 065
     Dates: start: 20201130, end: 20210510

REACTIONS (2)
  - Adjustment disorder with depressed mood [Unknown]
  - Anxiety [Unknown]

NARRATIVE: CASE EVENT DATE: 20210521
